FAERS Safety Report 19280176 (Version 2)
Quarter: 2021Q3

REPORT INFORMATION
  Report Type: Report from Study
  Country: US (occurrence: US)
  Receive Date: 20210520
  Receipt Date: 20210813
  Transmission Date: 20211014
  Serious: Yes (Hospitalization)
  Sender: FDA-Public Use
  Company Number: US-PFIZER INC-2021531368

PATIENT
  Age: 67 Year
  Sex: Male
  Weight: 92.7 kg

DRUGS (18)
  1. CLOBETASOL [Concomitant]
     Active Substance: CLOBETASOL
     Indication: RASH
     Dosage: UNK
     Route: 061
     Dates: start: 20210325
  2. EZETIMIBE. [Concomitant]
     Active Substance: EZETIMIBE
     Indication: HYPERLIPIDAEMIA
     Dosage: UNK
     Route: 048
     Dates: start: 20150101
  3. CHLORHEXIDINE [Concomitant]
     Active Substance: CHLORHEXIDINE
     Indication: GINGIVAL BLEEDING
     Dosage: MUCOUS MEMBRANE LIQUID
  4. DEXAMETHASONE. [Concomitant]
     Active Substance: DEXAMETHASONE
     Dosage: DEXAMETHASONE/NORMAL SALINE 3.3 MG; ROUTE: SWISH AND SPIT
     Dates: start: 20210412
  5. TESSALON [Concomitant]
     Active Substance: BENZONATATE
     Indication: COUGH
     Dosage: UNK
     Route: 048
     Dates: start: 20210505
  6. CLOBETASOL [Concomitant]
     Active Substance: CLOBETASOL
     Dosage: UNK
     Route: 061
     Dates: start: 20210331
  7. LASIX [Concomitant]
     Active Substance: FUROSEMIDE
     Indication: OEDEMA
     Dosage: UNK
     Route: 048
     Dates: start: 20210325
  8. BINIMETINIB [Suspect]
     Active Substance: BINIMETINIB
     Dosage: 30 MG, 2X/DAY
     Route: 048
     Dates: start: 20210311, end: 20210427
  9. BUDESONIDE/FORMOTEROL [Concomitant]
     Active Substance: BUDESONIDE\FORMOTEROL
     Indication: ASTHMA
     Dosage: [BUDESONIDE 80 MCG]/[ FORMOTEROL 4.5 MCG], INH INHALATION AEROSOL
     Route: 055
     Dates: start: 20100101
  10. MAGNESIUM GLUCONATE [Concomitant]
     Active Substance: MAGNESIUM GLUCONATE
     Indication: MUSCLE SPASMS
     Dosage: UNK
     Route: 048
     Dates: start: 20100101
  11. BAYER ASPIRIN [Concomitant]
     Active Substance: ASPIRIN
     Indication: PAIN
     Dosage: UNK, PRN
     Route: 048
     Dates: start: 20210405
  12. ASPIRIN [ACETYLSALICYLIC ACID] [Concomitant]
     Active Substance: ASPIRIN
     Indication: PROPHYLAXIS
     Dosage: UNK
     Route: 048
     Dates: start: 20200101
  13. IMATINIB. [Suspect]
     Active Substance: IMATINIB MESYLATE
     Dosage: 400 MG, 1X/DAY
     Route: 048
     Dates: start: 20210225, end: 20210505
  14. PROAIR HFA [Concomitant]
     Active Substance: ALBUTEROL SULFATE
     Indication: ASTHMA
     Dosage: ALBUTEROL (EQV?PROAIR HFA) 90 MCG/INH
     Route: 055
     Dates: start: 20100101
  15. FUROSEMIDE. [Concomitant]
     Active Substance: FUROSEMIDE
     Indication: OEDEMA
     Dosage: UNK
     Route: 048
     Dates: start: 20210426
  16. FUROSEMIDE. [Concomitant]
     Active Substance: FUROSEMIDE
     Indication: DYSPNOEA
  17. ATORVASTATIN [Concomitant]
     Active Substance: ATORVASTATIN
     Indication: BLOOD CHOLESTEROL
     Dosage: UNK
     Route: 048
     Dates: start: 20150101
  18. ZOLPIDEM [Concomitant]
     Active Substance: ZOLPIDEM TARTRATE
     Indication: SLEEP DISORDER
     Dosage: UNK
     Route: 048
     Dates: start: 20150101

REACTIONS (1)
  - Pneumonia [Recovered/Resolved]

NARRATIVE: CASE EVENT DATE: 20210509
